FAERS Safety Report 10023128 (Version 2)
Quarter: 2014Q1

REPORT INFORMATION
  Report Type: Spontaneous
  Country: FI (occurrence: FI)
  Receive Date: 20140320
  Receipt Date: 20140321
  Transmission Date: 20141002
  Serious: Yes (Other)
  Sender: FDA-Public Use
  Company Number: FI-ROCHE-1362701

PATIENT
  Sex: Female

DRUGS (3)
  1. ROACTEMRA [Suspect]
     Indication: POLYARTHRITIS
     Route: 042
     Dates: start: 201012
  2. SULFASALAZIN [Concomitant]
     Indication: POLYARTHRITIS
     Route: 065
     Dates: end: 201209
  3. MEDROL [Concomitant]
     Indication: POLYARTHRITIS
     Dosage: 2-4 MG
     Route: 065

REACTIONS (2)
  - Leukopenia [Unknown]
  - Hyperlipidaemia [Unknown]
